FAERS Safety Report 10387252 (Version 5)
Quarter: 2014Q4

REPORT INFORMATION
  Report Type: Spontaneous
  Country: US (occurrence: US)
  Receive Date: 20140815
  Receipt Date: 20141024
  Transmission Date: 20150528
  Serious: Yes (Hospitalization, Other)
  Sender: FDA-Public Use
  Company Number: US-BAYER-2014-114181

PATIENT
  Age: 26 Year
  Sex: Female
  Weight: 77.98 kg

DRUGS (5)
  1. LISINOPRIL. [Concomitant]
     Active Substance: LISINOPRIL
     Indication: HYPERTENSION
  2. MICRONOR [Concomitant]
     Active Substance: NORETHINDRONE
  3. LABETALOL [Concomitant]
     Active Substance: LABETALOL\LABETALOL HYDROCHLORIDE
     Indication: HYPERTENSION
  4. MIRENA [Suspect]
     Active Substance: LEVONORGESTREL
     Indication: CONTRACEPTION
     Dosage: 20 MCG/24HR, CONT
     Route: 015
     Dates: start: 20110113, end: 20130503
  5. JOLIVETTE [Concomitant]
     Active Substance: NORETHINDRONE

REACTIONS (11)
  - Pregnancy with contraceptive device [None]
  - Device difficult to use [None]
  - Drug ineffective [None]
  - Injury [None]
  - Uterine perforation [None]
  - Complication of device removal [None]
  - Pain [None]
  - Emotional distress [None]
  - Device dislocation [None]
  - Device breakage [None]
  - Menstruation delayed [None]

NARRATIVE: CASE EVENT DATE: 201110
